FAERS Safety Report 18668036 (Version 2)
Quarter: 2020Q4

REPORT INFORMATION
  Report Type: Report from Study
  Country: GB (occurrence: GB)
  Receive Date: 20201228
  Receipt Date: 20201230
  Transmission Date: 20210114
  Serious: Yes (Other)
  Sender: FDA-Public Use
  Company Number: NVSC2020GB265393

PATIENT
  Sex: Female

DRUGS (2)
  1. HYRIMOZ [Suspect]
     Active Substance: ADALIMUMAB-ADAZ
     Indication: COLITIS ULCERATIVE
     Dosage: UNK (WEEK 0: 160MG, WEEK 2: 80MG) ROUTE AS DIRECTED
     Route: 065
     Dates: start: 20200828
  2. HYRIMOZ [Suspect]
     Active Substance: ADALIMUMAB-ADAZ
     Dosage: 1 DF, Q2W (40MG/0.8ML)
     Route: 065

REACTIONS (5)
  - Frequent bowel movements [Unknown]
  - Haematochezia [Unknown]
  - Drug ineffective [Unknown]
  - Pain [Unknown]
  - SARS-CoV-2 test positive [Unknown]
